FAERS Safety Report 16008729 (Version 1)
Quarter: 2019Q1

REPORT INFORMATION
  Report Type: Report from Study
  Country: US (occurrence: US)
  Receive Date: 20190226
  Receipt Date: 20190226
  Transmission Date: 20190418
  Serious: No
  Sender: FDA-Public Use
  Company Number: US-AMAG PHARMACEUTICALS, INC.-AMAG201900412

PATIENT
  Age: 54 Year
  Sex: Female

DRUGS (1)
  1. INTRAROSA [Suspect]
     Active Substance: PRASTERONE
     Indication: PRODUCT USED FOR UNKNOWN INDICATION
     Dosage: UNK, QHS
     Route: 067
     Dates: start: 201807

REACTIONS (5)
  - Application site discharge [Unknown]
  - Pain [Unknown]
  - Anxiety [Unknown]
  - Malaise [Recovered/Resolved]
  - Cough [Recovered/Resolved]

NARRATIVE: CASE EVENT DATE: 201807
